FAERS Safety Report 7968913-1 (Version None)
Quarter: 2011Q4

REPORT INFORMATION
  Report Type: 
  Country: None (occurrence: None)
  Receive Date: 20111208
  Receipt Date: 20111122
  Transmission Date: 20120403
  Serious: Yes (Death, Life-Threatening, Hospitalization)
  Sender: FDA-Public Use
  Company Number: 1000025850

PATIENT
  Age: 78 Year
  Sex: Male

DRUGS (3)
  1. PHENPROCOUMON (PHENPR000UMON)(PHENPROCOUMON) [Concomitant]
  2. ROFLUMILAST (ROFLUMILAST) (500 MICROGRAM, TABLETS) [Suspect]
     Indication: CHRONIC OBSTRUCTIVE PULMONARY DISEASE
     Dosage: 500 MCG (500 MCG,1 IN 1 D),ORAL
     Route: 048
     Dates: start: 20111001, end: 20111108
  3. PHENPROCOUMON (PHENPR000UMON)(PHENPROCOUMON) [Concomitant]

REACTIONS (1)
  - RESPIRATORY FAILURE [None]
